FAERS Safety Report 10741407 (Version 2)
Quarter: 2015Q1

REPORT INFORMATION
  Report Type: Report from Study
  Country: DE (occurrence: DE)
  Receive Date: 20150127
  Receipt Date: 20150313
  Transmission Date: 20150721
  Serious: Yes (Hospitalization)
  Sender: FDA-Public Use
  Company Number: PHHO2015DE000536

PATIENT
  Age: 14 Year
  Sex: Female
  Weight: 50 kg

DRUGS (7)
  1. BLINDED NO TREATMENT RECEIVED [Suspect]
     Active Substance: UNSPECIFIED INGREDIENT
     Indication: HYPER IGD SYNDROME
     Dosage: CODE NOT BROKEN
     Route: 058
     Dates: start: 20141114
  2. BLINDED ACZ885 [Suspect]
     Active Substance: CANAKINUMAB
     Indication: FAMILIAL MEDITERRANEAN FEVER
  3. COLCHICIN [Concomitant]
     Active Substance: COLCHICINE
     Indication: ANTIINFLAMMATORY THERAPY
     Route: 065
  4. BLINDED NO TREATMENT RECEIVED [Suspect]
     Active Substance: UNSPECIFIED INGREDIENT
     Indication: FAMILIAL MEDITERRANEAN FEVER
  5. PLACEBO [Suspect]
     Active Substance: UNSPECIFIED INGREDIENT
     Indication: FAMILIAL MEDITERRANEAN FEVER
  6. BLINDED ACZ885 [Suspect]
     Active Substance: CANAKINUMAB
     Indication: HYPER IGD SYNDROME
     Dosage: CODE NOT BROKEN
     Route: 058
     Dates: start: 20141114
  7. PLACEBO [Suspect]
     Active Substance: UNSPECIFIED INGREDIENT
     Indication: HYPER IGD SYNDROME
     Dosage: CODE NOT BROKEN
     Route: 058
     Dates: start: 20141114

REACTIONS (4)
  - Familial mediterranean fever [Recovered/Resolved]
  - Conjunctivitis [Recovered/Resolved]
  - Hyper IgD syndrome [Recovered/Resolved]
  - Pharyngitis [Recovered/Resolved]

NARRATIVE: CASE EVENT DATE: 20150102
